FAERS Safety Report 8479564-7 (Version None)
Quarter: 2012Q2

REPORT INFORMATION
  Report Type: 
  Country: None (occurrence: None)
  Receive Date: 20120629
  Receipt Date: 20120625
  Transmission Date: 20120825
  Serious: Yes (Hospitalization, Other)
  Sender: FDA-Public Use
  Company Number: US-PFIZER INC-2011197826

PATIENT
  Sex: Male

DRUGS (5)
  1. PLAVIX [Concomitant]
     Indication: MYOCARDIAL INFARCTION
     Dosage: UNK
     Dates: start: 20010101
  2. FISH OIL [Concomitant]
     Indication: MEDICAL DIET
     Dosage: UNK
     Dates: start: 20040101
  3. TOPROL-XL [Concomitant]
     Indication: HYPERTENSION
     Dosage: UNK
     Dates: start: 20060101
  4. CHANTIX [Suspect]
     Indication: SMOKING CESSATION THERAPY
     Dosage: STARTER PAK, 1 MG, UNK
     Dates: start: 20080926, end: 20081121
  5. ACETYLSALICYLIC ACID [Concomitant]
     Indication: ANTICOAGULANT THERAPY
     Dosage: UNK
     Dates: start: 19980101

REACTIONS (9)
  - SUICIDE ATTEMPT [None]
  - IRRITABILITY [None]
  - DEPRESSION [None]
  - ANXIETY [None]
  - MUSCULAR WEAKNESS [None]
  - LOSS OF CONSCIOUSNESS [None]
  - ANGER [None]
  - AGGRESSION [None]
  - TRANSIENT ISCHAEMIC ATTACK [None]
